FAERS Safety Report 9676815 (Version 1)
Quarter: 2013Q4

REPORT INFORMATION
  Report Type: Spontaneous
  Country: US (occurrence: US)
  Receive Date: 20131107
  Receipt Date: 20131107
  Transmission Date: 20140711
  Serious: No
  Sender: FDA-Public Use
  Company Number: US-BAXTER-2012BAX020684

PATIENT
  Sex: Male

DRUGS (2)
  1. DIANEAL LOW CALCIUM [Suspect]
     Indication: PERITONEAL DIALYSIS
     Route: 033
     Dates: start: 20121010, end: 20121014
  2. DIANEAL LOW CALCIUM (ULTRABAG) [Suspect]
     Indication: PERITONEAL DIALYSIS
     Route: 033
     Dates: start: 20121012, end: 20121014

REACTIONS (8)
  - Headache [Unknown]
  - Dizziness [Unknown]
  - Local swelling [Unknown]
  - Dysphonia [Unknown]
  - Pulmonary oedema [Unknown]
  - Swelling face [Unknown]
  - Depressed level of consciousness [Unknown]
  - Memory impairment [Unknown]
